FAERS Safety Report 5105725-0 (Version None)
Quarter: 2006Q3

REPORT INFORMATION
  Report Type: 
  Country: None (occurrence: None)
  Receive Date: 20060915
  Receipt Date: 20060912
  Transmission Date: 20061208
  Serious: Yes (Death)
  Sender: FDA-Public Use
  Company Number: US-SANOFI-SYNTHELABO-A03200605664

PATIENT
  Age: 65 Year
  Sex: Female

DRUGS (5)
  1. OXALIPLATIN [Suspect]
     Indication: COLORECTAL CANCER METASTATIC
     Route: 042
     Dates: start: 20060719, end: 20060719
  2. ZOFRAN [Concomitant]
     Dosage: UNK
     Route: 065
  3. COMPAZINE [Concomitant]
     Dosage: UNK
     Route: 065
  4. PERCOCET [Concomitant]
     Dosage: UNK
     Route: 048
  5. FLUOROURACIL [Suspect]
     Indication: COLORECTAL CANCER METASTATIC
     Dosage: 540MG INTRAVENOUS PUSH FOLLOWED BY 815 MG CONTINUOUS INFUSION EVERY TWO WEEKS
     Route: 042
     Dates: start: 20060719, end: 20060721

REACTIONS (2)
  - THROMBOCYTOPENIA [None]
  - VENTRICULAR FIBRILLATION [None]
